FAERS Safety Report 5604718-4 (Version None)
Quarter: 2008Q1

REPORT INFORMATION
  Report Type: 
  Country: None (occurrence: None)
  Receive Date: 20080128
  Receipt Date: 20080115
  Transmission Date: 20080703
  Serious: Yes (Hospitalization)
  Sender: FDA-Public Use
  Company Number: FR-SOLVAY-00208000254

PATIENT
  Age: 31596 Day
  Sex: Female

DRUGS (6)
  1. UNKNOWN NSAID [Concomitant]
     Indication: ARTHRALGIA
     Dosage: DAILY DOSE:  UNKNOWN
     Route: 065
     Dates: start: 20071118
  2. COVERSYL [Suspect]
     Indication: ILL-DEFINED DISORDER
     Dosage: DAILY DOSE: 4 MILLIGRAM(S)
     Route: 048
     Dates: end: 20071122
  3. VITMAMIN K ANTAGONIST [Concomitant]
     Indication: ATRIAL FIBRILLATION
     Dosage: DAILY DOSE:  UNKNOWN
     Route: 065
  4. SPIRONOLACTONE [Suspect]
     Indication: ILL-DEFINED DISORDER
     Dosage: DAILY DOSE:  UNKNOWN
     Route: 048
     Dates: end: 20071122
  5. LASIX [Suspect]
     Indication: ILL-DEFINED DISORDER
     Dosage: DAILY DOSE:  UNKNOWN
     Route: 048
     Dates: end: 20071121
  6. LASIX [Suspect]
     Dosage: DAILY DOSE:  UNKNOWN
     Route: 048
     Dates: start: 20071201

REACTIONS (8)
  - CHOLELITHIASIS [None]
  - CULTURE URINE POSITIVE [None]
  - FEMUR FRACTURE [None]
  - GASTROINTESTINAL HAEMORRHAGE [None]
  - HYPERKALAEMIA [None]
  - HYPOTENSION [None]
  - INTESTINAL OBSTRUCTION [None]
  - RENAL FAILURE ACUTE [None]
